FAERS Safety Report 7678899-5 (Version None)
Quarter: 2011Q3

REPORT INFORMATION
  Report Type: 
  Country: None (occurrence: None)
  Receive Date: 20110812
  Receipt Date: 20110804
  Transmission Date: 20111222
  Serious: Yes (Hospitalization)
  Sender: FDA-Public Use
  Company Number: US-BIOGENIDEC-2011BI020297

PATIENT
  Age: 51 Year
  Sex: Female

DRUGS (1)
  1. AVONEX [Suspect]
     Indication: MULTIPLE SCLEROSIS
     Route: 030
     Dates: start: 20090523

REACTIONS (5)
  - WOUND [None]
  - SEPSIS [None]
  - WOUND INFECTION STAPHYLOCOCCAL [None]
  - FUNGAL INFECTION [None]
  - URINARY TRACT INFECTION [None]
